FAERS Safety Report 20812417 (Version 1)
Quarter: 2022Q2

REPORT INFORMATION
  Report Type: Report from Study
  Country: US (occurrence: US)
  Receive Date: 20220511
  Receipt Date: 20220511
  Transmission Date: 20220721
  Serious: Yes (Other)
  Sender: FDA-Public Use
  Company Number: US-ABBVIE-22K-163-4312204-00

PATIENT
  Age: 23 Year
  Sex: Female

DRUGS (5)
  1. HUMIRA [Suspect]
     Active Substance: ADALIMUMAB
     Indication: Crohn^s disease
     Dosage: CF/DAY 01
     Route: 058
     Dates: start: 20211220, end: 20211220
  2. HUMIRA [Suspect]
     Active Substance: ADALIMUMAB
     Dosage: CF/DAY 15
     Route: 058
     Dates: start: 20220104, end: 20220104
  3. HUMIRA [Suspect]
     Active Substance: ADALIMUMAB
     Dosage: CF/DAY 29
     Route: 058
     Dates: start: 20220118
  4. HUMIRA [Suspect]
     Active Substance: ADALIMUMAB
     Route: 058
  5. PFIZER-BIONTECH COVID-19 VACCINE [Concomitant]
     Active Substance: TOZINAMERAN
     Indication: COVID-19 immunisation
     Route: 030

REACTIONS (4)
  - Anal fistula [Unknown]
  - Crohn^s disease [Unknown]
  - Abscess [Recovered/Resolved]
  - Cellulitis [Recovering/Resolving]

NARRATIVE: CASE EVENT DATE: 20220423
